FAERS Safety Report 5401888-8 (Version None)
Quarter: 2007Q3

REPORT INFORMATION
  Report Type: 
  Country: None (occurrence: None)
  Receive Date: 20070731
  Receipt Date: 20070725
  Transmission Date: 20080115
  Serious: Yes (Other)
  Sender: FDA-Public Use
  Company Number: US-SHR-US-2007-006261

PATIENT
  Sex: Female
  Weight: 69 kg

DRUGS (1)
  1. CLIMARA [Suspect]
     Dosage: .037 MG/D, 1X/WEEK
     Route: 062
     Dates: start: 20060610

REACTIONS (3)
  - BENIGN BREAST NEOPLASM [None]
  - LYMPHADENECTOMY [None]
  - PHARMACEUTICAL PRODUCT COMPLAINT [None]
